FAERS Safety Report 9653347 (Version 1)
Quarter: 2013Q4

REPORT INFORMATION
  Report Type: Spontaneous
  Country: US (occurrence: US)
  Receive Date: 20131029
  Receipt Date: 20131029
  Transmission Date: 20140711
  Serious: No
  Sender: FDA-Public Use
  Company Number: US-009507513-1310USA011443

PATIENT
  Sex: Female
  Weight: 73.4 kg

DRUGS (2)
  1. DECADRON [Suspect]
     Dosage: 2 MG, QD
     Route: 048
  2. GABAPENTIN [Concomitant]
     Dosage: TWO HOURS BEFORE CHEMO

REACTIONS (1)
  - Drug ineffective [Unknown]
